FAERS Safety Report 5712388-X (Version None)
Quarter: 2008Q2

REPORT INFORMATION
  Report Type: 
  Country: None (occurrence: None)
  Receive Date: 20080422
  Receipt Date: 20080414
  Transmission Date: 20081010
  Serious: Yes (Hospitalization)
  Sender: FDA-Public Use
  Company Number: PHHO2007US10791

PATIENT
  Age: 46 Year
  Sex: Male
  Weight: 83 kg

DRUGS (12)
  1. CERTICAN [Suspect]
     Indication: RENAL TRANSPLANT
     Dosage: 1.5 MG /DAILY
     Route: 048
     Dates: start: 20061118
  2. NEORAL [Suspect]
     Indication: RENAL TRANSPLANT
     Dosage: 150 MG /DAILY
     Route: 048
     Dates: start: 20061118
  3. PREDNISONE [Concomitant]
  4. APRESOLINE [Concomitant]
  5. LOPRESSOR [Concomitant]
  6. VALCYTE [Concomitant]
  7. RESTORIL [Concomitant]
  8. PLAVIX [Concomitant]
  9. FLOMAX [Concomitant]
  10. ZOCOR [Concomitant]
  11. NEXIUM [Concomitant]
  12. INSULIN [Concomitant]

REACTIONS (16)
  - ABSCESS LIMB [None]
  - BACTERAEMIA [None]
  - CELLULITIS [None]
  - CHILLS [None]
  - DEBRIDEMENT [None]
  - EXCESSIVE GRANULATION TISSUE [None]
  - MALAISE [None]
  - METATARSAL EXCISION [None]
  - OEDEMA PERIPHERAL [None]
  - OSTEOMYELITIS [None]
  - PAIN IN EXTREMITY [None]
  - PYREXIA [None]
  - STAPHYLOCOCCAL INFECTION [None]
  - WOUND CLOSURE [None]
  - WOUND COMPLICATION [None]
  - WOUND SECRETION [None]
